FAERS Safety Report 6446714-3 (Version None)
Quarter: 2009Q4

REPORT INFORMATION
  Report Type: 
  Country: None (occurrence: None)
  Receive Date: 20091119
  Receipt Date: 20091112
  Transmission Date: 20100525
  Serious: Yes (Hospitalization)
  Sender: FDA-Public Use
  Company Number: B0603629A

PATIENT
  Sex: Female

DRUGS (9)
  1. ZOVIRAX [Suspect]
     Indication: ENCEPHALITIS HERPES
     Dosage: 650MG THREE TIMES PER DAY
     Route: 042
     Dates: start: 20091009, end: 20091015
  2. FORLAX [Concomitant]
     Indication: DRUG USE FOR UNKNOWN INDICATION
     Dosage: 10G PER DAY
     Route: 048
     Dates: start: 20091003
  3. EQUANIL [Concomitant]
     Indication: DRUG USE FOR UNKNOWN INDICATION
     Dosage: 200MG TWICE PER DAY
     Route: 048
     Dates: start: 20091012, end: 20091015
  4. COLCHICINE [Concomitant]
     Indication: CHONDROCALCINOSIS
     Route: 048
     Dates: start: 20091008, end: 20091011
  5. MONO-TILDIEM LP [Concomitant]
     Indication: DRUG USE FOR UNKNOWN INDICATION
     Dosage: 200MG PER DAY
     Route: 048
     Dates: end: 20091015
  6. CALCIPARINE [Concomitant]
     Indication: THROMBOSIS PROPHYLAXIS
     Dosage: .2ML TWICE PER DAY
     Route: 058
     Dates: start: 20091008
  7. COLPOTROPHINE [Concomitant]
     Route: 067
     Dates: start: 20091008
  8. 5% GLUCOSE [Concomitant]
     Indication: DRUG USE FOR UNKNOWN INDICATION
     Route: 042
     Dates: start: 20091009, end: 20091015
  9. PARACETAMOL [Concomitant]
     Route: 048
     Dates: start: 20091006, end: 20091018

REACTIONS (15)
  - AGITATION [None]
  - COMA [None]
  - CONDITION AGGRAVATED [None]
  - CONFUSIONAL STATE [None]
  - DISORIENTATION [None]
  - ENCEPHALOPATHY [None]
  - INCOHERENT [None]
  - INCORRECT DOSE ADMINISTERED [None]
  - INFLAMMATION [None]
  - LUNG DISORDER [None]
  - MYOCLONUS [None]
  - RENAL FAILURE ACUTE [None]
  - RESPIRATION ABNORMAL [None]
  - SOMNOLENCE [None]
  - UNRESPONSIVE TO STIMULI [None]
